FAERS Safety Report 4903058-6 (Version None)
Quarter: 2006Q1

REPORT INFORMATION
  Report Type: 
  Country: None (occurrence: None)
  Receive Date: 20060207
  Receipt Date: 20050623
  Transmission Date: 20060701
  Serious: Yes (Hospitalization, Disabling)
  Sender: FDA-Public Use
  Company Number: US-ROCHE-408914

PATIENT
  Age: 17 Year
  Sex: Female
  Weight: 65.8 kg

DRUGS (5)
  1. ACCUTANE [Suspect]
     Dosage: 20MG CAPS.
     Route: 048
     Dates: start: 20021204, end: 20021231
  2. ACCUTANE [Suspect]
     Dosage: 40 MG CAPS.
     Route: 048
     Dates: start: 20021231, end: 20030226
  3. ACCUTANE [Suspect]
     Dosage: 40 MG CAPS, ALTERNATE BID/QOD.
     Route: 048
     Dates: start: 20030226, end: 20030402
  4. ACCUTANE [Suspect]
     Dosage: 40 MG CAPS.
     Route: 048
     Dates: start: 20030402, end: 20030615
  5. KEFLEX [Concomitant]
     Route: 048
     Dates: start: 20030519, end: 20030615

REACTIONS (46)
  - ABDOMINAL PAIN [None]
  - ACNE [None]
  - ANAEMIA [None]
  - ANHEDONIA [None]
  - ANXIETY [None]
  - ARTHRALGIA [None]
  - ASTHENIA [None]
  - BACK PAIN [None]
  - BLOOD ALBUMIN INCREASED [None]
  - COLITIS [None]
  - COLITIS ULCERATIVE [None]
  - CONTUSION [None]
  - CYST [None]
  - DEPRESSION [None]
  - DRY SKIN [None]
  - FATIGUE [None]
  - GASTROINTESTINAL DISORDER [None]
  - GASTROOESOPHAGEAL REFLUX DISEASE [None]
  - HAEMATOCHEZIA [None]
  - HORMONE LEVEL ABNORMAL [None]
  - HOT FLUSH [None]
  - HYPOGLYCAEMIA [None]
  - INFLAMMATORY BOWEL DISEASE [None]
  - INSOMNIA [None]
  - INTESTINAL HAEMORRHAGE [None]
  - IRON DEFICIENCY ANAEMIA [None]
  - JOINT SPRAIN [None]
  - LYMPHOCYTE COUNT DECREASED [None]
  - MUSCLE SPASMS [None]
  - NEUTROPHIL COUNT DECREASED [None]
  - OEDEMA PERIPHERAL [None]
  - PAIN [None]
  - PALLOR [None]
  - PLATELET COUNT INCREASED [None]
  - PYELONEPHRITIS [None]
  - PYREXIA [None]
  - RECTAL HAEMORRHAGE [None]
  - RED CELL DISTRIBUTION WIDTH INCREASED [None]
  - REFUSAL OF TREATMENT BY PATIENT [None]
  - RHINITIS ALLERGIC [None]
  - ROAD TRAFFIC ACCIDENT [None]
  - SINUSITIS [None]
  - SOMNOLENCE [None]
  - WEIGHT DECREASED [None]
  - WEIGHT FLUCTUATION [None]
  - WHITE BLOOD CELL COUNT DECREASED [None]
